FAERS Safety Report 5417716-0 (Version None)
Quarter: 2007Q3

REPORT INFORMATION
  Report Type: 
  Country: None (occurrence: None)
  Receive Date: 20070815
  Receipt Date: 20070815
  Transmission Date: 20080115
  Serious: Yes (Hospitalization)
  Sender: FDA-Public Use
  Company Number: None

PATIENT
  Sex: Female
  Weight: 59.8748 kg

DRUGS (2)
  1. BIAXIN [Suspect]
     Indication: EAR INFECTION
     Dosage: PO X 1 DOSE
     Route: 048
     Dates: start: 20061031
  2. BIAXIN [Suspect]
     Indication: SINUSITIS
     Dosage: PO X 1 DOSE
     Route: 048
     Dates: start: 20061031

REACTIONS (1)
  - ANAPHYLACTIC REACTION [None]
